FAERS Safety Report 8487855-9 (Version None)
Quarter: 2012Q3

REPORT INFORMATION
  Report Type: 
  Country: None (occurrence: None)
  Receive Date: 20120705
  Receipt Date: 20120626
  Transmission Date: 20120928
  Serious: Yes (Other)
  Sender: FDA-Public Use
  Company Number: US-US-EMD SERONO, INC.-7144181

PATIENT
  Sex: Female

DRUGS (1)
  1. REBIF [Suspect]
     Indication: MULTIPLE SCLEROSIS
     Route: 058
     Dates: start: 20061205, end: 20090901

REACTIONS (4)
  - STILLBIRTH [None]
  - PLACENTAL INFARCTION [None]
  - MATERNAL EXPOSURE TIMING UNSPECIFIED [None]
  - UTERINE PERFORATION [None]
